FAERS Safety Report 13430856 (Version 2)
Quarter: 2017Q2

REPORT INFORMATION
  Report Type: Spontaneous
  Country: BR (occurrence: BR)
  Receive Date: 20170412
  Receipt Date: 20170421
  Transmission Date: 20170830
  Serious: Yes (Other)
  Sender: FDA-Public Use
  Company Number: BR-ABBVIE-17P-020-1941400-00

PATIENT
  Sex: Female
  Weight: 84 kg

DRUGS (1)
  1. DEPAKOTE ER [Suspect]
     Active Substance: DIVALPROEX SODIUM
     Indication: MANIA
     Dosage: DAILY DOSE: 2 TBL; IN THE MORNING
     Route: 048

REACTIONS (2)
  - Thyroid disorder [Unknown]
  - Weight increased [Unknown]
